FAERS Safety Report 5901993-3 (Version None)
Quarter: 2008Q3

REPORT INFORMATION
  Report Type: 
  Country: None (occurrence: None)
  Receive Date: 20080909
  Receipt Date: 20080716
  Transmission Date: 20090109
  Serious: Yes (Other)
  Sender: FDA-Public Use
  Company Number: US-WYE-H05178208

PATIENT
  Age: 85 Year
  Sex: Female
  Weight: 56.75 kg

DRUGS (2)
  1. ADVIL [Suspect]
     Indication: ARTHRITIS
     Dosage: 1 CAPSULE 1X PER 1 DAY, ORAL
     Route: 048
     Dates: start: 20080701, end: 20080701
  2. ASPIRIN [Concomitant]

REACTIONS (2)
  - CONDITION AGGRAVATED [None]
  - IRRITABLE BOWEL SYNDROME [None]
